FAERS Safety Report 9349272 (Version 5)
Quarter: 2015Q2

REPORT INFORMATION
  Report Type: Report from Study
  Country: DE (occurrence: DE)
  Receive Date: 20130614
  Receipt Date: 20150508
  Transmission Date: 20150821
  Serious: Yes (Hospitalization)
  Sender: FDA-Public Use
  Company Number: DE-TEVA-412373USA

PATIENT
  Age: 76 Year
  Sex: Female

DRUGS (12)
  1. PREDNISOLON [Suspect]
     Active Substance: PREDNISOLONE
     Dates: start: 20130523
  2. DIGITOXIN [Concomitant]
     Active Substance: DIGITOXIN
     Dosage: .07 MILLIGRAM DAILY;
  3. ALLOPURINOL. [Concomitant]
     Active Substance: ALLOPURINOL
     Dosage: 150 MILLIGRAM DAILY;
     Dates: end: 20130614
  4. PREDNISOLON [Suspect]
     Active Substance: PREDNISOLONE
     Dates: start: 20130424
  5. CLEXANE [Concomitant]
     Active Substance: ENOXAPARIN SODIUM
     Dosage: 1.2 ML DAILY;
  6. RITUXIMAB [Suspect]
     Active Substance: RITUXIMAB
     Route: 042
     Dates: start: 20130424
  7. METOPROLOL [Concomitant]
     Active Substance: METOPROLOL
     Dosage: 190 MILLIGRAM DAILY;
  8. OMEPRAZOL [Concomitant]
     Active Substance: OMEPRAZOLE
     Dosage: 40 MILLIGRAM DAILY;
  9. BENDAMUSTINE [Suspect]
     Active Substance: BENDAMUSTINE
     Route: 042
     Dates: start: 20130428
  10. LANTUS [Concomitant]
     Active Substance: INSULIN GLARGINE
     Dosage: 10  DAILY; IE
  11. BENDAMUSTINE [Suspect]
     Active Substance: BENDAMUSTINE
     Route: 042
     Dates: start: 20130524
  12. RITUXIMAB [Suspect]
     Active Substance: RITUXIMAB
     Route: 042
     Dates: start: 20130523

REACTIONS (5)
  - Disorientation [Recovering/Resolving]
  - Malnutrition [Recovered/Resolved]
  - Dementia [Recovered/Resolved]
  - Delirium [Recovered/Resolved]
  - Infection [Recovered/Resolved]

NARRATIVE: CASE EVENT DATE: 20130602
